FAERS Safety Report 6684890-8 (Version None)
Quarter: 2010Q2

REPORT INFORMATION
  Report Type: 
  Country: None (occurrence: None)
  Receive Date: 20100416
  Receipt Date: 20100407
  Transmission Date: 20101027
  Serious: Yes (Other)
  Sender: FDA-Public Use
  Company Number: IT-CELGENEUS-083-20785-07050651

PATIENT
  Age: 55 Year

DRUGS (2)
  1. THALOMID [Suspect]
     Indication: MULTIPLE MYELOMA
     Route: 048
  2. DEXAMETHASONE [Suspect]
     Indication: MULTIPLE MYELOMA
     Route: 048

REACTIONS (8)
  - BRADYCARDIA [None]
  - CONSTIPATION [None]
  - DEEP VEIN THROMBOSIS [None]
  - INFECTION [None]
  - INTESTINAL INFARCTION [None]
  - NEUROPATHY PERIPHERAL [None]
  - RASH [None]
  - SEDATION [None]
